FAERS Safety Report 7819201-5 (Version None)
Quarter: 2011Q4

REPORT INFORMATION
  Report Type: 
  Country: None (occurrence: None)
  Receive Date: 20111018
  Receipt Date: 20111013
  Transmission Date: 20120403
  Serious: Yes (Hospitalization)
  Sender: FDA-Public Use
  Company Number: JP-BRISTOL-MYERS SQUIBB COMPANY-16148256

PATIENT
  Age: 62 Year
  Sex: Male

DRUGS (4)
  1. ERBITUX [Suspect]
     Indication: COLON CANCER
     Route: 042
     Dates: start: 20110724
  2. LEUCOVORIN CALCIUM [Concomitant]
     Indication: COLON CANCER
     Route: 042
  3. FLUOROURACIL [Suspect]
     Indication: COLON CANCER
     Route: 042
  4. IRINOTECAN HCL [Concomitant]
     Indication: COLON CANCER
     Route: 042

REACTIONS (1)
  - PIGMENTATION DISORDER [None]
